FAERS Safety Report 12340424 (Version 1)
Quarter: 2016Q2

REPORT INFORMATION
  Report Type: Spontaneous
  Country: US (occurrence: None)
  Receive Date: 20160505
  Receipt Date: 20160505
  Transmission Date: 20160815
  Serious: No
  Sender: FDA-Public Use
  Company Number: None

PATIENT
  Age: 49 Year
  Sex: Female
  Weight: 91.17 kg

DRUGS (15)
  1. ATIVAN [Concomitant]
     Active Substance: LORAZEPAM
  2. TIZANDINE [Concomitant]
     Active Substance: TIZANIDINE
  3. LEXAPRO [Concomitant]
     Active Substance: ESCITALOPRAM OXALATE
  4. ADVAIR HFA [Concomitant]
     Active Substance: FLUTICASONE PROPIONATE\SALMETEROL XINAFOATE
  5. NEBULIZER [Concomitant]
     Active Substance: DEVICE
  6. VIT D 3 [Concomitant]
  7. ARMOUR THYROID [Suspect]
     Active Substance: THYROID, PORCINE
     Indication: ANTI-THYROID ANTIBODY POSITIVE
     Route: 048
     Dates: start: 20160401, end: 20160430
  8. VITAMIN B12 [Concomitant]
     Active Substance: CYANOCOBALAMIN
  9. ZYRTEC [Concomitant]
     Active Substance: CETIRIZINE HYDROCHLORIDE
  10. SINGULAIR [Concomitant]
     Active Substance: MONTELUKAST SODIUM
  11. PROAIR HFA [Concomitant]
     Active Substance: ALBUTEROL SULFATE
  12. NEURONTIN [Concomitant]
     Active Substance: GABAPENTIN
  13. TRAMADOL. [Concomitant]
     Active Substance: TRAMADOL
  14. DAILY VITAMIN [Concomitant]
     Active Substance: VITAMINS
  15. IRON [Concomitant]
     Active Substance: IRON

REACTIONS (2)
  - Hyperhidrosis [None]
  - Flushing [None]

NARRATIVE: CASE EVENT DATE: 20160408
